FAERS Safety Report 10068996 (Version 1)
Quarter: 2014Q2

REPORT INFORMATION
  Report Type: Spontaneous
  Country: US (occurrence: US)
  Receive Date: 20140409
  Receipt Date: 20140409
  Transmission Date: 20141212
  Serious: No
  Sender: FDA-Public Use
  Company Number: US-ASTRAZENECA-2014SE02331

PATIENT
  Age: 50 Year
  Sex: Female

DRUGS (1)
  1. BRILINTA [Suspect]
     Indication: MYOCARDIAL INFARCTION
     Route: 048
     Dates: start: 2013

REACTIONS (2)
  - Dyspnoea [Recovered/Resolved]
  - Intentional product misuse [Unknown]
